FAERS Safety Report 18193939 (Version 2)
Quarter: 2020Q4

REPORT INFORMATION
  Report Type: Spontaneous
  Country: US (occurrence: US)
  Receive Date: 20200825
  Receipt Date: 20201207
  Transmission Date: 20210113
  Serious: Yes (Hospitalization, Other)
  Sender: FDA-Public Use
  Company Number: US-GILEAD-2020-0491422

PATIENT
  Age: 66 Year
  Sex: Male
  Weight: 73.47 kg

DRUGS (27)
  1. ALPRAZOLAM. [Concomitant]
     Active Substance: ALPRAZOLAM
  2. METFORMIN [Concomitant]
     Active Substance: METFORMIN HYDROCHLORIDE
  3. MYRBETRIC [Concomitant]
     Active Substance: MIRABEGRON
  4. POTASSIUM CLORIDE 40 [Concomitant]
     Active Substance: POTASSIUM CHLORIDE
  5. TAMSULOSIN [Concomitant]
     Active Substance: TAMSULOSIN
  6. VASCEPA [Concomitant]
     Active Substance: ICOSAPENT ETHYL
  7. KALETRA [Concomitant]
     Active Substance: LOPINAVIR\RITONAVIR
  8. CHOLECALCIFEROL [Concomitant]
     Active Substance: CHOLECALCIFEROL
  9. COREG [Concomitant]
     Active Substance: CARVEDILOL
  10. DILT CD [Concomitant]
  11. LASIX [Concomitant]
     Active Substance: FUROSEMIDE
  12. SUSTIVA [Concomitant]
     Active Substance: EFAVIRENZ
  13. PLAVIX [Concomitant]
     Active Substance: CLOPIDOGREL BISULFATE
  14. ASPIRIN (E.C.) [Concomitant]
     Active Substance: ASPIRIN
  15. BUPROPION. [Concomitant]
     Active Substance: BUPROPION
  16. FLOMAX [Concomitant]
     Active Substance: TAMSULOSIN HYDROCHLORIDE
  17. PAROXETINE. [Concomitant]
     Active Substance: PAROXETINE
  18. SODIUM BICARBONATE. [Concomitant]
     Active Substance: SODIUM BICARBONATE
  19. XELODA [Concomitant]
     Active Substance: CAPECITABINE
  20. TRUVADA [Suspect]
     Active Substance: EMTRICITABINE\TENOFOVIR DISOPROXIL FUMARATE
     Indication: HIV INFECTION
     Dosage: UNK
     Route: 048
     Dates: start: 200406, end: 201710
  21. FEXOFENADINE [Concomitant]
     Active Substance: FEXOFENADINE HYDROCHLORIDE
  22. SYNTHROID [Concomitant]
     Active Substance: LEVOTHYROXINE SODIUM
  23. TRAJENTA [Concomitant]
     Active Substance: LINAGLIPTIN
  24. ATORVASTATIN [Concomitant]
     Active Substance: ATORVASTATIN
  25. BACTRIM DS [Concomitant]
     Active Substance: SULFAMETHOXAZOLE\TRIMETHOPRIM
  26. METOPROLOL. [Concomitant]
     Active Substance: METOPROLOL
  27. OXYBUTYNIN. [Concomitant]
     Active Substance: OXYBUTYNIN CHLORIDE

REACTIONS (6)
  - Chronic kidney disease [Not Recovered/Not Resolved]
  - Acute kidney injury [Not Recovered/Not Resolved]
  - Loss of personal independence in daily activities [Not Recovered/Not Resolved]
  - Pain [Not Recovered/Not Resolved]
  - Anhedonia [Not Recovered/Not Resolved]
  - Emotional distress [Not Recovered/Not Resolved]

NARRATIVE: CASE EVENT DATE: 201406
